FAERS Safety Report 9831180 (Version 2)
Quarter: 2015Q1

REPORT INFORMATION
  Report Type: Report from Study
  Country: US (occurrence: US)
  Receive Date: 20140121
  Receipt Date: 20150107
  Transmission Date: 20150721
  Serious: Yes (Death)
  Sender: FDA-Public Use
  Company Number: US-ROCHE-1334073

PATIENT
  Age: 50 Year
  Sex: Female

DRUGS (9)
  1. NEULASTA [Suspect]
     Active Substance: PEGFILGRASTIM
     Route: 030
  2. PROCRIT [Concomitant]
     Active Substance: ERYTHROPOIETIN
     Dosage: 40,000 UNITS, 10/NOV/2011
     Route: 058
  3. AVASTIN [Suspect]
     Active Substance: BEVACIZUMAB
     Indication: OVARIAN CANCER
     Dosage: ON 31/MAR/2011, 14/APR/2011, 28/APR/2011, 12/MAY/2011, 03/JUN/2011, 20/JUN/2011, 05/JUL/2011, 19/JUL
     Route: 042
     Dates: start: 20110317
  4. AVASTIN [Suspect]
     Active Substance: BEVACIZUMAB
     Indication: METASTASES TO BONE
  5. NEULASTA [Suspect]
     Active Substance: PEGFILGRASTIM
     Indication: PRODUCT USED FOR UNKNOWN INDICATION
     Dosage: 23/AUG/2011 RECEIVED THE DOSE 6 MG
     Route: 030
  6. COMPAZINE [Concomitant]
     Active Substance: PROCHLORPERAZINE MALEATE
     Dosage: 28/AUG/2011
     Route: 048
  7. AREDIA [Concomitant]
     Active Substance: PAMIDRONATE DISODIUM
     Dosage: 23/JUN/2011
     Route: 040
  8. COUMADIN [Concomitant]
     Active Substance: WARFARIN SODIUM
     Dosage: 09/SEP/2011
     Route: 065
  9. AVASTIN [Suspect]
     Active Substance: BEVACIZUMAB
     Indication: BREAST CANCER
     Route: 042

REACTIONS (10)
  - Diarrhoea [Unknown]
  - Feeling hot [Unknown]
  - Abdominal pain [Unknown]
  - Product use issue [Unknown]
  - Death [Fatal]
  - Fatigue [Unknown]
  - Nausea [Unknown]
  - Asthenia [Unknown]
  - Infection [Unknown]
  - Anaemia [Unknown]

NARRATIVE: CASE EVENT DATE: 20111222
